FAERS Safety Report 9931661 (Version 1)
Quarter: 2014Q1

REPORT INFORMATION
  Report Type: Spontaneous
  Country: US (occurrence: None)
  Receive Date: 20140227
  Receipt Date: 20140227
  Transmission Date: 20141002
  Serious: Yes (Other)
  Sender: FDA-Public Use
  Company Number: None

PATIENT
  Age: 44 Year
  Sex: Female
  Weight: 63.05 kg

DRUGS (4)
  1. GABAPENTIN [Suspect]
     Indication: PAIN
     Dosage: 1 TABLET; AFTER ONE WEEK 2 TABLETS
     Route: 048
     Dates: start: 20140216, end: 20140217
  2. MONTELUKAST [Concomitant]
  3. VALTREX [Concomitant]
  4. ZYRTEC [Concomitant]

REACTIONS (9)
  - Abdominal pain upper [None]
  - Headache [None]
  - Anger [None]
  - Dizziness [None]
  - Insomnia [None]
  - Clumsiness [None]
  - Hyperacusis [None]
  - Photosensitivity reaction [None]
  - Nausea [None]
